FAERS Safety Report 9797468 (Version 1)
Quarter: 2014Q1

REPORT INFORMATION
  Report Type: Report from Study
  Country: AR (occurrence: AR)
  Receive Date: 20140106
  Receipt Date: 20140106
  Transmission Date: 20141002
  Serious: Yes (Other)
  Sender: FDA-Public Use
  Company Number: PHHY2013AR153172

PATIENT
  Sex: Male

DRUGS (3)
  1. DIOVAN D [Suspect]
     Indication: HYPERTENSION
     Dosage: 1 DF (VALS 160MG HCTZ 25MG) A DAY
     Route: 048
     Dates: start: 1999
  2. DIOVAN D [Suspect]
     Dosage: 1 DF (VALS 160/ HCTZ 12.5) BID
     Route: 048
     Dates: start: 201310
  3. DIOVAN D [Suspect]
     Dosage: 1 DF (VALS 160MG HCTZ 25MG) A DAY
     Route: 048
     Dates: start: 201311

REACTIONS (2)
  - Myasthenia gravis [Recovering/Resolving]
  - Type 2 diabetes mellitus [Recovering/Resolving]
